FAERS Safety Report 19071818 (Version 1)
Quarter: 2021Q1

REPORT INFORMATION
  Report Type: Spontaneous
  Country: US (occurrence: US)
  Receive Date: 20210329
  Receipt Date: 20210329
  Transmission Date: 20210420
  Serious: No
  Sender: FDA-Public Use
  Company Number: None

PATIENT
  Age: 80 Year
  Sex: Female
  Weight: 87.54 kg

DRUGS (23)
  1. INSULIN PUMP [Concomitant]
     Active Substance: DEVICE\INSULIN NOS
  2. HUMALOG [Concomitant]
     Active Substance: INSULIN LISPRO
  3. VITAMIN D3 [Concomitant]
     Active Substance: CHOLECALCIFEROL
  4. CARVEDILOL. [Concomitant]
     Active Substance: CARVEDILOL
  5. OMEGA 3?6?9 FATTY ACIDS [Concomitant]
  6. BIPAP [Concomitant]
     Active Substance: DEVICE
  7. CONTOUR NEXT TEST STRIPS [Concomitant]
  8. VITAMIN C [Concomitant]
     Active Substance: ASCORBIC ACID
  9. ASPIRIN. [Concomitant]
     Active Substance: ASPIRIN
  10. IMODIUM A?D [Concomitant]
     Active Substance: LOPERAMIDE HYDROCHLORIDE
  11. SLEEP APNEA MACHINE [Concomitant]
  12. MEDICAL DEVICES [Concomitant]
     Active Substance: DEVICE
  13. CALCIUM CARBONATE. [Concomitant]
     Active Substance: CALCIUM CARBONATE
  14. LISINOPRIL. [Concomitant]
     Active Substance: LISINOPRIL
  15. TYLENOL EXTRA STRENGTH [Concomitant]
     Active Substance: ACETAMINOPHEN
  16. SOOTHE XP PRESERVATIVE FREE [Suspect]
     Active Substance: LIGHT MINERAL OIL\MINERAL OIL
     Indication: DRY EYE
     Dosage: ?QUANTITY:0.01 F1 OR EACH;?OTHER ROUTE:1 GTT EACH EYE BID?
     Dates: start: 20210224, end: 20210226
  17. VITAMIN D [Concomitant]
     Active Substance: VITAMIN D NOS
  18. ALENDRONATE SODIUM. [Concomitant]
     Active Substance: ALENDRONATE SODIUM
  19. NASAL PILLOW [Concomitant]
  20. CARDICE PACE MAKER [Concomitant]
  21. VITAMIN E [Concomitant]
     Active Substance: .ALPHA.-TOCOPHEROL
  22. GABAPENTIN. [Concomitant]
     Active Substance: GABAPENTIN
  23. MUCINEX [Concomitant]
     Active Substance: GUAIFENESIN

REACTIONS (4)
  - Eye irritation [None]
  - Eye swelling [None]
  - Eye pain [None]
  - Ocular hyperaemia [None]

NARRATIVE: CASE EVENT DATE: 20210226
